FAERS Safety Report 10226382 (Version 1)
Quarter: 2014Q2

REPORT INFORMATION
  Report Type: Spontaneous
  Country: JP (occurrence: JP)
  Receive Date: 20140609
  Receipt Date: 20140609
  Transmission Date: 20141212
  Serious: Yes (Life-Threatening)
  Sender: FDA-Public Use
  Company Number: JP-B.I. PHARMACEUTICALS,INC./RIDGEFIELD-2014-BI-25574NB

PATIENT
  Age: 72 Year
  Sex: Male

DRUGS (1)
  1. PRAZAXA [Suspect]
     Indication: THROMBOSIS PROPHYLAXIS
     Dosage: 220 MG
     Route: 048
     Dates: start: 201403

REACTIONS (3)
  - Acute coronary syndrome [Unknown]
  - Ventricular fibrillation [Unknown]
  - Cardio-respiratory arrest [Unknown]
